FAERS Safety Report 23066586 (Version 1)
Quarter: 2023Q4

REPORT INFORMATION
  Report Type: Spontaneous
  Country: FR (occurrence: FR)
  Receive Date: 20231015
  Receipt Date: 20231015
  Transmission Date: 20240110
  Serious: Yes (Hospitalization)
  Sender: FDA-Public Use
  Company Number: FR-BoehringerIngelheim-2023-BI-266080

PATIENT
  Age: 23 Year
  Sex: Male

DRUGS (3)
  1. CLONIDINE [Suspect]
     Active Substance: CLONIDINE
     Indication: Accidental exposure to product by child
     Dates: start: 20230808, end: 20230808
  2. FOLIC ACID [Suspect]
     Active Substance: FOLIC ACID
     Indication: Accidental exposure to product by child
     Dosage: ACIDE FOLIQUE
     Dates: start: 20230808, end: 20230808
  3. FERROUS FUMARATE [Suspect]
     Active Substance: FERROUS FUMARATE
     Indication: Accidental exposure to product by child
     Dates: start: 20230808, end: 20230808

REACTIONS (3)
  - Vertigo [Recovered/Resolved]
  - Somnolence [Recovered/Resolved]
  - Accidental exposure to product by child [Recovered/Resolved]

NARRATIVE: CASE EVENT DATE: 20230808
